FAERS Safety Report 5268865-1 (Version None)
Quarter: 2007Q1

REPORT INFORMATION
  Report Type: 
  Country: None (occurrence: None)
  Receive Date: 20061213
  Receipt Date: 20040107
  Transmission Date: 20070707
  Serious: Yes (Other)
  Sender: FDA-Public Use
  Company Number: 2003UW16137

PATIENT
  Age: 53 Year
  Sex: Female
  Weight: 63.5036 kg

DRUGS (6)
  1. IRESSA [Suspect]
     Indication: LUNG NEOPLASM MALIGNANT
     Dosage: 250 MG DAILY PO
     Route: 048
     Dates: start: 20031029, end: 20031110
  2. IRESSA [Suspect]
     Indication: LUNG NEOPLASM MALIGNANT
     Dosage: 125 MG PO
     Route: 048
     Dates: start: 20031121, end: 20031126
  3. COUMADIN [Concomitant]
  4. DIFLUCAN [Concomitant]
  5. ANTIBIOTICS [Concomitant]
  6. PEPCID [Concomitant]

REACTIONS (6)
  - ARTHRITIS [None]
  - DIARRHOEA [None]
  - HYPOAESTHESIA [None]
  - INFECTION [None]
  - OEDEMA PERIPHERAL [None]
  - PAIN [None]
